FAERS Safety Report 8447528 (Version 4)
Quarter: 2013Q2

REPORT INFORMATION
  Report Type: Spontaneous
  Country: US (occurrence: US)
  Receive Date: 20120308
  Receipt Date: 20130422
  Transmission Date: 20140414
  Serious: Yes (Disabling, Other)
  Sender: FDA-Public Use
  Company Number: US-ROCHE-1045330

PATIENT
  Age: 47 Year
  Sex: Male
  Weight: 135 kg

DRUGS (11)
  1. KLONOPIN [Suspect]
     Indication: TORTICOLLIS
     Route: 048
     Dates: start: 20081014
  2. KLONOPIN [Suspect]
     Route: 048
  3. KLONOPIN [Suspect]
     Route: 048
  4. PHENOBARBITAL [Suspect]
     Indication: DRUG DETOXIFICATION
     Route: 065
  5. PHENOBARBITAL [Suspect]
     Indication: CONVULSION PROPHYLAXIS
  6. ZEGERID [Concomitant]
     Indication: GASTROOESOPHAGEAL REFLUX DISEASE
     Route: 048
     Dates: start: 20100708
  7. PAXIL [Concomitant]
     Indication: DEPRESSION
     Route: 048
     Dates: start: 20070415
  8. XANAX [Concomitant]
     Route: 065
  9. XANAX [Concomitant]
     Route: 065
  10. LEVOXYL [Concomitant]
     Indication: HYPOTHYROIDISM
     Route: 048
     Dates: start: 20080825
  11. ACIPHEX [Concomitant]
     Indication: GASTROOESOPHAGEAL REFLUX DISEASE
     Route: 048
     Dates: start: 20070506

REACTIONS (42)
  - Dependence [Not Recovered/Not Resolved]
  - Depression [Not Recovered/Not Resolved]
  - Wheelchair user [Recovering/Resolving]
  - Muscular weakness [Not Recovered/Not Resolved]
  - Insomnia [Not Recovered/Not Resolved]
  - Impaired work ability [Not Recovered/Not Resolved]
  - Weight decreased [Not Recovered/Not Resolved]
  - Tremor [Not Recovered/Not Resolved]
  - Suicidal ideation [Not Recovered/Not Resolved]
  - Withdrawal syndrome [Not Recovered/Not Resolved]
  - Dyspepsia [Not Recovered/Not Resolved]
  - Retching [Not Recovered/Not Resolved]
  - Pain [Not Recovered/Not Resolved]
  - Suicidal ideation [Not Recovered/Not Resolved]
  - Ill-defined disorder [Not Recovered/Not Resolved]
  - Vomiting [Not Recovered/Not Resolved]
  - Abdominal pain upper [Not Recovered/Not Resolved]
  - Eructation [Not Recovered/Not Resolved]
  - Dyspnoea [Not Recovered/Not Resolved]
  - Quality of life decreased [Not Recovered/Not Resolved]
  - Vision blurred [Not Recovered/Not Resolved]
  - Decreased appetite [Not Recovered/Not Resolved]
  - Heart rate increased [Not Recovered/Not Resolved]
  - Eating disorder [Not Recovered/Not Resolved]
  - Withdrawal syndrome [Not Recovered/Not Resolved]
  - Adverse drug reaction [Unknown]
  - Irritability [Unknown]
  - Poor quality sleep [Unknown]
  - Sedation [Unknown]
  - Nausea [Recovering/Resolving]
  - Feeling abnormal [Unknown]
  - Lethargy [Unknown]
  - Fatigue [Unknown]
  - Dyspepsia [Unknown]
  - Gastrooesophageal reflux disease [Unknown]
  - Muscle atrophy [Unknown]
  - Serum serotonin decreased [Not Recovered/Not Resolved]
  - Asthenia [Not Recovered/Not Resolved]
  - Weight decreased [Not Recovered/Not Resolved]
  - Poor quality sleep [Not Recovered/Not Resolved]
  - Dyskinesia [Not Recovered/Not Resolved]
  - Feeling abnormal [Not Recovered/Not Resolved]
